FAERS Safety Report 18289053 (Version 1)
Quarter: 2020Q3

REPORT INFORMATION
  Report Type: Spontaneous
  Country: US (occurrence: US)
  Receive Date: 20200921
  Receipt Date: 20200921
  Transmission Date: 20201103
  Serious: Yes (Life-Threatening)
  Sender: FDA-Public Use
  Company Number: None

PATIENT
  Age: 35 Year
  Sex: Female
  Weight: 49.5 kg

DRUGS (4)
  1. SINGULAIR [Suspect]
     Active Substance: MONTELUKAST SODIUM
     Indication: ASTHMA
     Route: 048
     Dates: start: 20200626, end: 20200916
  2. MONONESSA [Concomitant]
     Active Substance: ETHINYL ESTRADIOL\NORGESTIMATE
  3. ALLEGRA [Concomitant]
     Active Substance: FEXOFENADINE HYDROCHLORIDE
  4. FLUTICASONE. [Concomitant]
     Active Substance: FLUTICASONE

REACTIONS (7)
  - Mood swings [None]
  - Fatigue [None]
  - Feeling of despair [None]
  - Depression [None]
  - Suicidal ideation [None]
  - Irritability [None]
  - Decreased interest [None]

NARRATIVE: CASE EVENT DATE: 20200916
